FAERS Safety Report 9966915 (Version 2)
Quarter: 2014Q1

REPORT INFORMATION
  Report Type: Spontaneous
  Country: US (occurrence: US)
  Receive Date: 20140305
  Receipt Date: 20140321
  Transmission Date: 20141002
  Serious: Yes (Hospitalization)
  Sender: FDA-Public Use
  Company Number: US-LUNDBECK-DKLU1097905

PATIENT
  Age: 1 Year
  Sex: Male

DRUGS (6)
  1. SABRIL (FOR ORAL SOLUTION) [Suspect]
     Indication: INFANTILE SPASMS
     Route: 048
     Dates: start: 20130728
  2. ACTH [Concomitant]
     Indication: EPILEPSY
     Dates: start: 201305
  3. ACTH [Concomitant]
     Indication: MUSCLE SPASMS
  4. KEPPRA [Concomitant]
     Indication: EPILEPSY
     Dates: start: 201305
  5. TOPAMAX [Concomitant]
     Indication: EPILEPSY
     Dates: start: 201305
  6. ZANTAC [Concomitant]
     Indication: GASTRITIS PROPHYLAXIS
     Dates: start: 201305

REACTIONS (1)
  - Brain operation [Unknown]
